FAERS Safety Report 8248097-5 (Version None)
Quarter: 2012Q1

REPORT INFORMATION
  Report Type: 
  Country: None (occurrence: None)
  Receive Date: 20120330
  Receipt Date: 20120320
  Transmission Date: 20120608
  Serious: Yes (Hospitalization, Other)
  Sender: FDA-Public Use
  Company Number: US-JNJFOC-20120309784

PATIENT

DRUGS (3)
  1. REMICADE [Suspect]
     Indication: PRODUCT USED FOR UNKNOWN INDICATION
     Route: 042
     Dates: start: 20111201
  2. REMICADE [Suspect]
     Route: 042
     Dates: start: 20111229
  3. REMICADE [Suspect]
     Dosage: ALSO REPORTED AS 300 MG EVERY 6 WEEKS
     Route: 042
     Dates: start: 20110201

REACTIONS (4)
  - PNEUMONIA [None]
  - CARDIAC FAILURE CONGESTIVE [None]
  - VENTRICULAR ARRHYTHMIA [None]
  - INFECTION [None]
